FAERS Safety Report 6987454-1 (Version None)
Quarter: 2010Q3

REPORT INFORMATION
  Report Type: 
  Country: None (occurrence: None)
  Receive Date: 20100916
  Receipt Date: 20100907
  Transmission Date: 20110219
  Serious: Yes (Other)
  Sender: FDA-Public Use
  Company Number: PHHY2010JP59427

PATIENT
  Age: 63 Year
  Sex: Female

DRUGS (1)
  1. LEPONEX / CLOZARIL (CLOZAPINE) LEX+TAB [Suspect]
     Indication: SCHIZOPHRENIA
     Route: 048

REACTIONS (2)
  - INFECTION [None]
  - PYREXIA [None]
